FAERS Safety Report 9885985 (Version 1)
Quarter: 2014Q1

REPORT INFORMATION
  Report Type: Spontaneous
  Country: GB (occurrence: GB)
  Receive Date: 20140210
  Receipt Date: 20140210
  Transmission Date: 20141002
  Serious: Yes (Other)
  Sender: FDA-Public Use
  Company Number: GB-GLAXOSMITHKLINE-B0965739A

PATIENT
  Sex: 0

DRUGS (1)
  1. CEFUROXIME [Suspect]
     Route: 047

REACTIONS (2)
  - Uveitis [Unknown]
  - Lenticular opacities [Unknown]
